FAERS Safety Report 6095265-7 (Version None)
Quarter: 2009Q1

REPORT INFORMATION
  Report Type: 
  Country: None (occurrence: None)
  Receive Date: 20090227
  Receipt Date: 20080222
  Transmission Date: 20090719
  Serious: No
  Sender: FDA-Public Use
  Company Number: A0711376A

PATIENT
  Age: 5 Year
  Sex: Male

DRUGS (2)
  1. LAMICTAL [Suspect]
     Dosage: 4MG TWICE PER DAY
     Route: 048
     Dates: start: 20060101
  2. DEPAKOTE [Concomitant]

REACTIONS (4)
  - ELECTROENCEPHALOGRAM ABNORMAL [None]
  - RASH [None]
  - SKIN DISORDER [None]
  - URTICARIA [None]
